FAERS Safety Report 10169132 (Version 1)
Quarter: 2014Q2

REPORT INFORMATION
  Report Type: Spontaneous
  Country: US (occurrence: US)
  Receive Date: 20140513
  Receipt Date: 20140513
  Transmission Date: 20141212
  Serious: No
  Sender: FDA-Public Use
  Company Number: US-TARO-2013P1011367

PATIENT
  Age: 17 Month
  Sex: Female
  Weight: 8.05 kg

DRUGS (5)
  1. CETIRIZINE HCL CHILDREN ORAL SOLUTION ALLERGY 1MG/ML (SUGARFREE GRAPE) [Suspect]
     Indication: ECZEMA
     Route: 048
     Dates: start: 20130703, end: 20130703
  2. CETIRIZINE HCL CHILDREN ORAL SOLUTION ALLERGY 1MG/ML (SUGARFREE GRAPE) [Suspect]
     Indication: URTICARIA
     Route: 048
     Dates: start: 20130703, end: 20130703
  3. ZANTAC [Concomitant]
  4. NEXIUM [Concomitant]
  5. CORTISONE [Concomitant]
     Route: 061

REACTIONS (3)
  - Urticaria [Recovering/Resolving]
  - Lip swelling [Recovering/Resolving]
  - Drug administered to patient of inappropriate age [Unknown]
